FAERS Safety Report 8263662-7 (Version None)
Quarter: 2012Q2

REPORT INFORMATION
  Report Type: 
  Country: None (occurrence: None)
  Receive Date: 20120405
  Receipt Date: 20120323
  Transmission Date: 20120825
  Serious: Yes (Death, Hospitalization)
  Sender: FDA-Public Use
  Company Number: JP-ROCHE-1040576

PATIENT
  Sex: Female
  Weight: 47 kg

DRUGS (4)
  1. LOXONIN [Concomitant]
     Indication: PAIN
     Route: 048
     Dates: start: 20111025, end: 20120205
  2. MUCOSTA [Concomitant]
     Indication: GASTRITIS
     Route: 048
     Dates: start: 20111025, end: 20120205
  3. AVASTIN [Suspect]
     Indication: BREAST CANCER METASTATIC
     Route: 041
     Dates: start: 20111220, end: 20120105
  4. PACLITAXEL [Concomitant]
     Indication: BREAST CANCER METASTATIC
     Route: 041
     Dates: start: 20111220, end: 20111220

REACTIONS (7)
  - MALAISE [None]
  - DUODENAL ULCER PERFORATION [None]
  - EPISTAXIS [None]
  - HEPATOSPLENOMEGALY [None]
  - MOUTH HAEMORRHAGE [None]
  - HEPATIC FAILURE [None]
  - ABDOMINAL DISTENSION [None]
